FAERS Safety Report 8004174-5 (Version None)
Quarter: 2011Q4

REPORT INFORMATION
  Report Type: 
  Country: None (occurrence: None)
  Receive Date: 20111223
  Receipt Date: 20111219
  Transmission Date: 20120403
  Serious: Yes (Other)
  Sender: FDA-Public Use
  Company Number: DE-BIOGENIDEC-2011BI047863

PATIENT
  Age: 29 Year
  Sex: Male

DRUGS (2)
  1. RESTEX [Concomitant]
     Indication: RESTLESS LEGS SYNDROME
     Dates: start: 20110810
  2. TYSABRI [Suspect]
     Indication: RELAPSING-REMITTING MULTIPLE SCLEROSIS
     Route: 042
     Dates: start: 20110826

REACTIONS (1)
  - SUBCUTANEOUS ABSCESS [None]
